FAERS Safety Report 8317967-1 (Version None)
Quarter: 2012Q2

REPORT INFORMATION
  Report Type: 
  Country: None (occurrence: None)
  Receive Date: 20120427
  Receipt Date: 20120423
  Transmission Date: 20120825
  Serious: Yes (Death, Hospitalization, Other)
  Sender: FDA-Public Use
  Company Number: US-SANOFI-AVENTIS-2012SA001508

PATIENT
  Age: 57 Year
  Sex: Female
  Weight: 78.46 kg

DRUGS (8)
  1. DOCETAXEL [Suspect]
     Indication: NON-SMALL CELL LUNG CANCER STAGE IV
     Route: 042
     Dates: start: 20111115, end: 20111206
  2. ESOMEPRAZOLE MAGNESIUM [Concomitant]
     Dates: start: 20110614
  3. OXYCODONE HCL [Concomitant]
     Indication: PAIN
     Dates: start: 20111024
  4. PROCHLORPERAZINE [Concomitant]
     Indication: NAUSEA
     Dates: start: 20111107
  5. ALBUTEROL [Concomitant]
     Dates: start: 20111209
  6. BLINDED THERAPY [Suspect]
     Indication: NON-SMALL CELL LUNG CANCER STAGE IV
     Route: 065
     Dates: start: 20111115, end: 20111206
  7. LORAZEPAM [Concomitant]
     Indication: ANXIETY
     Dates: start: 20110524
  8. OXYCODONE HCL AND ACETAMINOPHEN [Concomitant]
     Indication: PAIN
     Dates: start: 20110614

REACTIONS (4)
  - RESPIRATORY FAILURE [None]
  - FATIGUE [None]
  - THROMBOCYTOPENIA [None]
  - PNEUMONIA [None]
